FAERS Safety Report 4687055-4 (Version None)
Quarter: 2005Q2

REPORT INFORMATION
  Report Type: 
  Country: None (occurrence: None)
  Receive Date: 20050608
  Receipt Date: 20050531
  Transmission Date: 20051028
  Serious: Yes (Hospitalization)
  Sender: FDA-Public Use
  Company Number: 200504504

PATIENT
  Age: 20 Month
  Sex: Male

DRUGS (4)
  1. ALESION (EPINASTINE) [Suspect]
     Indication: RHINITIS ALLERGIC
     Dosage: 0.5 G DAILY PO
     Route: 048
     Dates: start: 20050425
  2. THEO-DUR [Concomitant]
  3. ONON [Concomitant]
  4. HOKUNALIN [Concomitant]

REACTIONS (1)
  - THROMBOCYTOPENIC PURPURA [None]
